FAERS Safety Report 16113831 (Version 1)
Quarter: 2019Q1

REPORT INFORMATION
  Report Type: Spontaneous
  Country: US (occurrence: US)
  Receive Date: 20190325
  Receipt Date: 20190325
  Transmission Date: 20190418
  Serious: No
  Sender: FDA-Public Use
  Company Number: US-ALLERGAN-1838321US

PATIENT
  Age: 49 Year
  Sex: Female

DRUGS (1)
  1. LATISSE [Suspect]
     Active Substance: BIMATOPROST
     Indication: PRODUCT USED FOR UNKNOWN INDICATION
     Dosage: 2 GTT, QHS
     Route: 061
     Dates: start: 201807, end: 201807

REACTIONS (5)
  - Eyelid irritation [Recovering/Resolving]
  - Eyelid rash [Recovering/Resolving]
  - Eyelid thickening [Recovering/Resolving]
  - Hypersensitivity [Recovering/Resolving]
  - Inappropriate schedule of product administration [Unknown]

NARRATIVE: CASE EVENT DATE: 201807
